FAERS Safety Report 18445465 (Version 1)
Quarter: 2020Q4

REPORT INFORMATION
  Report Type: Spontaneous
  Country: GB (occurrence: GB)
  Receive Date: 20201030
  Receipt Date: 20201030
  Transmission Date: 20210114
  Serious: Yes (Hospitalization, Other)
  Sender: FDA-Public Use
  Company Number: GB-PFIZER INC-2020418067

PATIENT

DRUGS (1)
  1. VARENICLINE TARTRATE [Suspect]
     Active Substance: VARENICLINE TARTRATE
     Dosage: 1 MG
     Route: 048

REACTIONS (12)
  - Vision blurred [Unknown]
  - Dyspepsia [Unknown]
  - Swelling face [Unknown]
  - Faeces discoloured [Unknown]
  - Chills [Unknown]
  - Cold sweat [Unknown]
  - Chest pain [Unknown]
  - Melaena [Unknown]
  - Peripheral coldness [Unknown]
  - Suspected counterfeit product [Unknown]
  - Haematochezia [Unknown]
  - Peripheral swelling [Unknown]
